FAERS Safety Report 6514970-9 (Version None)
Quarter: 2009Q4

REPORT INFORMATION
  Report Type: 
  Country: None (occurrence: None)
  Receive Date: 20091223
  Receipt Date: 20091218
  Transmission Date: 20100525
  Serious: Yes (Disabling)
  Sender: FDA-Public Use
  Company Number: DK-BRACCO-000027

PATIENT
  Sex: Male
  Weight: 55 kg

DRUGS (7)
  1. CONTRAST MEDIA [Suspect]
     Indication: DIAGNOSTIC PROCEDURE
     Route: 042
     Dates: start: 20020121, end: 20020121
  2. SELO-ZOK [Concomitant]
     Route: 048
  3. COZAAR [Concomitant]
     Route: 048
  4. DIURAL [Concomitant]
     Route: 065
  5. CALCIUM CARBONATE [Concomitant]
     Route: 065
  6. MAGNYL [Concomitant]
     Route: 065
  7. MIXTARD HUMAN 70/30 [Concomitant]
     Route: 065

REACTIONS (1)
  - NEPHROGENIC SYSTEMIC FIBROSIS [None]
